FAERS Safety Report 8987984 (Version 2)
Quarter: 2013Q1

REPORT INFORMATION
  Report Type: Report from Study
  Country: DE (occurrence: DE)
  Receive Date: 20121227
  Receipt Date: 20130201
  Transmission Date: 20140127
  Serious: Yes (Hospitalization)
  Sender: FDA-Public Use
  Company Number: DE-ROCHE-1173877

PATIENT
  Age: 59 Year
  Sex: Male
  Weight: 86.5 kg

DRUGS (2)
  1. CAPECITABINE [Suspect]
     Indication: COLON CANCER
     Dosage: DAY 1 TO DAY 33, LAST DOSE BEFORE SAE ON 01/JUL/2011 AT MORNING DOSE OF 2000 MG AND EVENING DOSE OF
     Route: 048
     Dates: start: 20110530
  2. OXALIPLATIN [Suspect]
     Indication: COLON CANCER
     Dosage: ON D1 8 15 22 29,LAST DOSE BEFORE SAE ON 14/JUN/2011 (107 MG)
     Route: 042
     Dates: start: 20110530

REACTIONS (1)
  - Pancreatitis [Recovered/Resolved]
